FAERS Safety Report 16394118 (Version 1)
Quarter: 2019Q3

REPORT INFORMATION
  Report Type: Spontaneous
  Country: US (occurrence: US)
  Receive Date: 20190603
  Receipt Date: 20190603
  Transmission Date: 20191004
  Serious: Yes (Other)
  Sender: FDA-Public Use
  Company Number: None

PATIENT
  Age: 56 Year
  Sex: Male
  Weight: 54 kg

DRUGS (7)
  1. VORTIOXETINE 10MG DAILY [Concomitant]
  2. PALIPERIDONE. [Suspect]
     Active Substance: PALIPERIDONE
     Indication: PSYCHOTIC DISORDER
     Route: 048
     Dates: start: 20190424
  3. MIRTAZAPINE 45MG DAILY [Concomitant]
  4. PALIPERIDONE. [Suspect]
     Active Substance: PALIPERIDONE
     Indication: AUTISM SPECTRUM DISORDER
     Route: 048
     Dates: start: 20190424
  5. LEVOTHYROXINE 50MCG DAILY [Concomitant]
  6. PANTOPRAZOLE 40MG DAILY [Concomitant]
  7. TAMSULOSIN 0.4MG HS [Concomitant]

REACTIONS (4)
  - Gaze palsy [None]
  - Urinary retention [None]
  - Chest pain [None]
  - Oculogyric crisis [None]

NARRATIVE: CASE EVENT DATE: 20190426
